APPROVED DRUG PRODUCT: ETOPOSIDE
Active Ingredient: ETOPOSIDE
Strength: 20MG/ML
Dosage Form/Route: INJECTABLE;INJECTION
Application: A074284 | Product #001
Applicant: TEVA PHARMACEUTICALS USA
Approved: Feb 10, 1994 | RLD: No | RS: No | Type: DISCN